FAERS Safety Report 7780209-X (Version None)
Quarter: 2011Q3

REPORT INFORMATION
  Report Type: 
  Country: None (occurrence: None)
  Receive Date: 20110927
  Receipt Date: 20110927
  Transmission Date: 20111222
  Serious: No
  Sender: FDA-Public Use
  Company Number: None

PATIENT
  Age: 58 Year
  Sex: Female
  Weight: 54.431 kg

DRUGS (2)
  1. MONISTAT [Suspect]
     Indication: PAIN
     Dosage: ONE DAY APPLICATOR CREAM
     Route: 067
     Dates: start: 20100416, end: 20100416
  2. MONISTAT [Suspect]
     Indication: SWELLING
     Dosage: ONE DAY APPLICATOR CREAM
     Route: 067
     Dates: start: 20100416, end: 20100416

REACTIONS (7)
  - VULVOVAGINAL BURNING SENSATION [None]
  - FEELING ABNORMAL [None]
  - VULVOVAGINAL PAIN [None]
  - DYSPAREUNIA [None]
  - DRUG INEFFECTIVE [None]
  - SEXUAL DYSFUNCTION [None]
  - DRUG RESISTANCE [None]
